FAERS Safety Report 4818972-X (Version None)
Quarter: 2005Q4

REPORT INFORMATION
  Report Type: 
  Country: None (occurrence: None)
  Receive Date: 20051101
  Receipt Date: 20051024
  Transmission Date: 20060501
  Serious: Yes (Hospitalization)
  Sender: FDA-Public Use
  Company Number: ST-2005-008673

PATIENT
  Age: 90 Year
  Sex: Male

DRUGS (3)
  1. OLMETEC [Suspect]
     Indication: HYPERTENSION
     Dosage: 10 MG BID; PO
     Route: 048
     Dates: start: 20041122, end: 20051013
  2. BAYLOTENSIN [Concomitant]
  3. HISRACK [Concomitant]

REACTIONS (1)
  - HEPATITIS [None]
